FAERS Safety Report 8428522-7 (Version None)
Quarter: 2012Q2

REPORT INFORMATION
  Report Type: 
  Country: None (occurrence: None)
  Receive Date: 20120606
  Receipt Date: 20120606
  Transmission Date: 20120825
  Serious: Yes (Other)
  Sender: FDA-Public Use
  Company Number: None

PATIENT
  Age: 24 Day
  Sex: Female
  Weight: 58.9676 kg

DRUGS (1)
  1. ALKA SELTZER, 1000 MG, BAYER [Suspect]
     Indication: HYPERCHLORHYDRIA
     Dosage: 1000 MG, ONCE, PO
     Route: 048
     Dates: start: 20120604, end: 20120604

REACTIONS (8)
  - CHEST DISCOMFORT [None]
  - URTICARIA [None]
  - HYPERSENSITIVITY [None]
  - DYSPNOEA [None]
  - OCULAR HYPERAEMIA [None]
  - PHARYNGEAL OEDEMA [None]
  - PRURITUS [None]
  - BURNING SENSATION [None]
